FAERS Safety Report 5130600-5 (Version None)
Quarter: 2006Q4

REPORT INFORMATION
  Report Type: 
  Country: None (occurrence: None)
  Receive Date: 20061013
  Receipt Date: 20061003
  Transmission Date: 20070319
  Serious: Yes (Hospitalization)
  Sender: FDA-Public Use
  Company Number: US200607000743

PATIENT
  Age: 39 Year
  Sex: Male
  Weight: 124.7 kg

DRUGS (5)
  1. ZYPREXA [Suspect]
     Dosage: SEE IMAGE
     Dates: end: 20030101
  2. ZYPREXA [Suspect]
     Dosage: SEE IMAGE
     Dates: start: 20010101
  3. QUETIAPINE [Concomitant]
  4. HALOPERIDOL [Concomitant]
  5. PAROXETINE HCL [Concomitant]

REACTIONS (5)
  - DIABETES MELLITUS [None]
  - METABOLIC DISORDER [None]
  - MYOCARDIAL INFARCTION [None]
  - OBESITY [None]
  - VISION BLURRED [None]
